FAERS Safety Report 4923083-9 (Version None)
Quarter: 2006Q1

REPORT INFORMATION
  Report Type: 
  Country: None (occurrence: None)
  Receive Date: 20060113
  Receipt Date: 20050308
  Transmission Date: 20060701
  Serious: Yes (Hospitalization)
  Sender: FDA-Public Use
  Company Number: HQWYE014825OCT04

PATIENT
  Age: 56 Year
  Sex: Female
  Weight: 63.56 kg

DRUGS (2)
  1. PREMPRO [Suspect]
     Indication: MENOMETRORRHAGIA
     Dosage: 0.625MG/2.5MG TABLET
     Dates: start: 19950101
  2. SYNTHROID [Concomitant]

REACTIONS (2)
  - CEREBROVASCULAR ACCIDENT [None]
  - WEIGHT INCREASED [None]
